FAERS Safety Report 18107948 (Version 1)
Quarter: 2020Q3

REPORT INFORMATION
  Report Type: Spontaneous
  Country: FR (occurrence: FR)
  Receive Date: 20200804
  Receipt Date: 20200804
  Transmission Date: 20201103
  Serious: Yes (Life-Threatening)
  Sender: FDA-Public Use
  Company Number: FR-TAKEDA-2020TUS033246

PATIENT
  Age: 54 Year
  Sex: Female

DRUGS (2)
  1. ALUNBRIG [Suspect]
     Active Substance: BRIGATINIB
     Indication: ANAPLASTIC LARGE-CELL LYMPHOMA
     Dosage: 90 MILLIGRAM
     Route: 065
     Dates: start: 20200730
  2. CORTICOID [Suspect]
     Active Substance: UNSPECIFIED INGREDIENT
     Indication: ANAPLASTIC LARGE-CELL LYMPHOMA
     Dosage: UNK
     Route: 065

REACTIONS (2)
  - Tumour lysis syndrome [Not Recovered/Not Resolved]
  - Off label use [Unknown]
